FAERS Safety Report 6707069-X (Version None)
Quarter: 2010Q2

REPORT INFORMATION
  Report Type: 
  Country: None (occurrence: None)
  Receive Date: 20100429
  Receipt Date: 20100417
  Transmission Date: 20101027
  Serious: Yes (Hospitalization)
  Sender: FDA-Public Use
  Company Number: 008695

PATIENT
  Sex: Female
  Weight: 70.3075 kg

DRUGS (9)
  1. CIMZIA [Suspect]
     Indication: CROHN'S DISEASE
     Dosage: (400 MG 1X/MONTH SUBCUTANEOUS)
     Route: 058
     Dates: start: 20090301
  2. CORTEF /00028601/ [Concomitant]
  3. ACIDOPHILUS [Concomitant]
  4. VITAMIN D [Concomitant]
  5. ZOLOFT [Concomitant]
  6. XANAX [Concomitant]
  7. PHENERGAN HCL [Concomitant]
  8. LYRICA [Concomitant]
  9. COREG [Concomitant]

REACTIONS (11)
  - ADRENOCORTICAL INSUFFICIENCY ACUTE [None]
  - ARTHRALGIA [None]
  - COLITIS [None]
  - DEHYDRATION [None]
  - ELECTROLYTE IMBALANCE [None]
  - IMPLANT SITE INFLAMMATION [None]
  - OSTEONECROSIS [None]
  - PAIN [None]
  - RASH [None]
  - URINARY TRACT INFECTION [None]
  - WEIGHT DECREASED [None]
